FAERS Safety Report 4789690-1 (Version None)
Quarter: 2005Q4

REPORT INFORMATION
  Report Type: 
  Country: None (occurrence: None)
  Receive Date: 20051006
  Receipt Date: 20050818
  Transmission Date: 20060501
  Serious: Yes (Hospitalization, Other)
  Sender: FDA-Public Use
  Company Number: FR-BRISTOL-MYERS SQUIBB COMPANY-13083969

PATIENT
  Age: 54 Year
  Sex: Male
  Weight: 70 kg

DRUGS (7)
  1. ABILIFY [Suspect]
     Indication: PSYCHOTIC DISORDER
     Route: 048
  2. ALCOHOL [Suspect]
  3. LEXOMIL [Concomitant]
     Indication: ANXIETY
     Route: 048
     Dates: start: 20010322
  4. SERESTA [Concomitant]
     Indication: ANXIETY
     Route: 048
     Dates: start: 20020516
  5. NOZINAN [Concomitant]
     Indication: ANXIETY
     Route: 048
     Dates: start: 20010618
  6. DEROXAT [Concomitant]
     Indication: DEPRESSION
     Route: 048
     Dates: start: 20020313
  7. MEPRONIZINE [Concomitant]
     Indication: INSOMNIA
     Route: 048
     Dates: start: 20041027

REACTIONS (2)
  - BLOOD GLUCOSE INCREASED [None]
  - EPILEPSY [None]
